FAERS Safety Report 4648648-3 (Version None)
Quarter: 2005Q2

REPORT INFORMATION
  Report Type: 
  Country: None (occurrence: None)
  Receive Date: 20050427
  Receipt Date: 20050330
  Transmission Date: 20051028
  Serious: Yes (Hospitalization)
  Sender: FDA-Public Use
  Company Number: PAR_0009_2005

PATIENT
  Age: 78 Year
  Sex: Male

DRUGS (7)
  1. ISOPTIN [Suspect]
     Dosage: 240 MG PO
     Route: 048
     Dates: end: 20050223
  2. ACIDE VALPROIQUE [Suspect]
     Dosage: 1 G PO
     Route: 048
     Dates: start: 20041101, end: 20050223
  3. MIANSERINE CHLORHYDRATE [Suspect]
     Dosage: 30 MG PO
     Route: 048
     Dates: start: 20050111, end: 20050222
  4. MEHANTINE CHLORHYDRATE [Suspect]
     Indication: DEPRESSION
     Dosage: 20 MG PO
     Route: 048
     Dates: start: 20050111, end: 20050217
  5. CLOPIDEGREL HYDROGENOSULF [Suspect]
     Dosage: DF PO
     Route: 048
     Dates: end: 20050222
  6. CLOZAPINE [Suspect]
     Dosage: 50 MG PO
     Route: 048
     Dates: start: 20041115, end: 20050217
  7. CLAVULIN [Concomitant]

REACTIONS (4)
  - BLOOD IRON DECREASED [None]
  - INFLAMMATION [None]
  - NORMOCHROMIC NORMOCYTIC ANAEMIA [None]
  - SERUM FERRITIN INCREASED [None]
